FAERS Safety Report 16145126 (Version 1)
Quarter: 2019Q2

REPORT INFORMATION
  Report Type: Spontaneous
  Country: US (occurrence: US)
  Receive Date: 20190401
  Receipt Date: 20190401
  Transmission Date: 20190711
  Serious: No
  Sender: FDA-Public Use
  Company Number: None

PATIENT
  Age: 71 Year
  Sex: Female

DRUGS (13)
  1. POLY-IRON [Concomitant]
     Active Substance: IRON
  2. HUMALOG [Concomitant]
     Active Substance: INSULIN LISPRO
  3. PROCRIT [Suspect]
     Active Substance: ERYTHROPOIETIN
     Indication: OSTEOARTHRITIS
     Dosage: ?          OTHER ROUTE:INJECTION?
     Dates: start: 20161013
  4. METHOCARBAM [Concomitant]
     Active Substance: METHOCARBAMOL
  5. AMLODIPINE [Concomitant]
     Active Substance: AMLODIPINE BESYLATE
  6. WARFARAN [Concomitant]
  7. TERAZOSIN [Concomitant]
     Active Substance: TERAZOSIN\TERAZOSIN HYDROCHLORIDE
  8. TORSEMIDE. [Concomitant]
     Active Substance: TORSEMIDE
  9. ATORVASTATIN [Concomitant]
     Active Substance: ATORVASTATIN
  10. JANUVIA [Concomitant]
     Active Substance: SITAGLIPTIN PHOSPHATE
  11. TOUJEO [Concomitant]
     Active Substance: INSULIN GLARGINE
  12. ULORIC [Concomitant]
     Active Substance: FEBUXOSTAT
  13. CARVEDILOL. [Concomitant]
     Active Substance: CARVEDILOL

REACTIONS (1)
  - Muscle spasms [None]

NARRATIVE: CASE EVENT DATE: 20190322
